FAERS Safety Report 19677065 (Version 1)
Quarter: 2021Q3

REPORT INFORMATION
  Report Type: Spontaneous
  Country: CA (occurrence: CA)
  Receive Date: 20210809
  Receipt Date: 20210809
  Transmission Date: 20211014
  Serious: Yes (Hospitalization)
  Sender: FDA-Public Use
  Company Number: CA-PFIZER INC-202100968830

PATIENT
  Age: 88 Year
  Sex: Male
  Weight: 111 kg

DRUGS (12)
  1. FRAGMIN [Suspect]
     Active Substance: DALTEPARIN SODIUM
     Indication: ANTICOAGULANT THERAPY
     Dosage: 10000 IU, 2X/DAY
     Route: 058
  2. CHOLECALCIFEROL [Concomitant]
     Active Substance: CHOLECALCIFEROL
  3. REPAGLINIDE. [Concomitant]
     Active Substance: REPAGLINIDE
  4. WARFARIN [Concomitant]
     Active Substance: WARFARIN
  5. CALCIUM [Concomitant]
     Active Substance: CALCIUM
  6. CITALOPRAM [Concomitant]
     Active Substance: CITALOPRAM HYDROBROMIDE
  7. PRAVASTATIN SODIUM. [Concomitant]
     Active Substance: PRAVASTATIN SODIUM
  8. PINDOLOL. [Concomitant]
     Active Substance: PINDOLOL
  9. AMLODIPINE [Concomitant]
     Active Substance: AMLODIPINE BESYLATE
  10. PREGABALIN. [Concomitant]
     Active Substance: PREGABALIN
  11. FRAGMIN [Suspect]
     Active Substance: DALTEPARIN SODIUM
     Dosage: 18000 IU, 1X/DAY
     Route: 058
  12. TAMSULOSIN CR [Concomitant]
     Active Substance: TAMSULOSIN

REACTIONS (7)
  - Injection site erythema [Unknown]
  - Injection site induration [Unknown]
  - Pruritus [Unknown]
  - Skin lesion [Unknown]
  - Urticaria [Unknown]
  - Feeling hot [Unknown]
  - Injection site haemorrhage [Unknown]
